FAERS Safety Report 4902431-X (Version None)
Quarter: 2006Q1

REPORT INFORMATION
  Report Type: 
  Country: None (occurrence: None)
  Receive Date: 20060131
  Receipt Date: 20060123
  Transmission Date: 20060701
  Serious: Yes (Other)
  Sender: FDA-Public Use
  Company Number: 2005BH003432

PATIENT
  Age: 7 Year
  Sex: Male

DRUGS (4)
  1. ADVATE [Suspect]
     Indication: PROPHYLAXIS
     Dosage: 1050 UNITS; Q OTHER DY;
  2. REFACTO [Concomitant]
  3. ADVATE [Suspect]
  4. ADVATE [Suspect]

REACTIONS (2)
  - ANAPHYLACTIC REACTION [None]
  - HAEMARTHROSIS [None]
